FAERS Safety Report 9292604 (Version 1)
Quarter: 2013Q2

REPORT INFORMATION
  Report Type: Spontaneous
  Country: US (occurrence: US)
  Receive Date: 20130516
  Receipt Date: 20130516
  Transmission Date: 20140414
  Serious: No
  Sender: FDA-Public Use
  Company Number: US-BAYER-2013-060789

PATIENT
  Age: 29 Year
  Sex: Male
  Weight: 86 kg

DRUGS (1)
  1. ALEVE TABLET [Suspect]
     Dosage: 6 DF, ONCE
     Route: 048
     Dates: start: 20130507, end: 20130507

REACTIONS (2)
  - Abdominal pain upper [Not Recovered/Not Resolved]
  - Incorrect dose administered [Not Recovered/Not Resolved]
